FAERS Safety Report 4984429-9 (Version None)
Quarter: 2006Q2

REPORT INFORMATION
  Report Type: 
  Country: None (occurrence: None)
  Receive Date: 20060427
  Receipt Date: 20060425
  Transmission Date: 20061013
  Serious: Yes (Disabling, Other)
  Sender: FDA-Public Use
  Company Number: US-GLAXOSMITHKLINE-A0603212A

PATIENT
  Sex: Female

DRUGS (9)
  1. REQUIP [Suspect]
     Indication: RESTLESS LEGS SYNDROME
     Route: 048
     Dates: start: 20050701, end: 20051201
  2. METHOTREXATE [Concomitant]
  3. SINGULAIR [Concomitant]
  4. SYNTHROID [Concomitant]
  5. PREDNISOLONE [Concomitant]
  6. PLAQUENIL [Concomitant]
  7. AMBIEN [Concomitant]
  8. KLONOPIN [Concomitant]
  9. FOLIC ACID [Concomitant]

REACTIONS (3)
  - EATING DISORDER [None]
  - PATHOLOGICAL GAMBLING [None]
  - WEIGHT INCREASED [None]
